FAERS Safety Report 15640667 (Version 3)
Quarter: 2018Q4

REPORT INFORMATION
  Report Type: Spontaneous
  Country: US (occurrence: US)
  Receive Date: 20181120
  Receipt Date: 20181127
  Transmission Date: 20190205
  Serious: Yes (Death, Disabling, Other)
  Sender: FDA-Public Use
  Company Number: US-SA-2018SA314115

PATIENT
  Age: 41 Year
  Sex: Male

DRUGS (4)
  1. OCREVUS [Suspect]
     Active Substance: OCRELIZUMAB
     Dosage: UNK
     Dates: start: 201801
  2. OCREVUS [Suspect]
     Active Substance: OCRELIZUMAB
     Dosage: UNK, UNK
     Route: 065
     Dates: start: 20180312, end: 20180827
  3. LEMTRADA [Suspect]
     Active Substance: ALEMTUZUMAB
     Dosage: 12 MG, QD
     Route: 041
     Dates: start: 20150320, end: 2015
  4. OCREVUS [Suspect]
     Active Substance: OCRELIZUMAB
     Dosage: UNK, UNK
     Route: 065
     Dates: start: 20180226

REACTIONS (3)
  - Infection [Fatal]
  - Disability [Unknown]
  - Pneumonia [Unknown]
